FAERS Safety Report 11872571 (Version 2)
Quarter: 2016Q1

REPORT INFORMATION
  Report Type: Spontaneous
  Country: US (occurrence: US)
  Receive Date: 20151228
  Receipt Date: 20160307
  Transmission Date: 20160526
  Serious: No
  Sender: FDA-Public Use
  Company Number: US-TEVA-616646USA

PATIENT
  Age: 56 Year
  Sex: Female

DRUGS (5)
  1. PROVIGIL [Suspect]
     Active Substance: MODAFINIL
     Dosage: 200 MILLIGRAM DAILY; QAM
     Route: 048
  2. SINGULAIR [Concomitant]
     Active Substance: MONTELUKAST SODIUM
     Dosage: 10 MILLIGRAM DAILY; QPM
     Route: 048
  3. COPAXONE [Suspect]
     Active Substance: GLATIRAMER ACETATE
     Route: 058
  4. CYMBALTA [Concomitant]
     Active Substance: DULOXETINE HYDROCHLORIDE
     Dosage: 60 MILLIGRAM DAILY;
     Route: 048
  5. HYDROCHLOROTHIAZIDE. [Concomitant]
     Active Substance: HYDROCHLOROTHIAZIDE
     Dosage: 50 MILLIGRAM DAILY;
     Route: 048

REACTIONS (10)
  - Sleep apnoea syndrome [Unknown]
  - Depression [Unknown]
  - Gait disturbance [Unknown]
  - Dry mouth [Unknown]
  - Urinary incontinence [Unknown]
  - Vitamin D deficiency [Unknown]
  - Fatigue [Recovered/Resolved with Sequelae]
  - Injection site bruising [Unknown]
  - Arthralgia [Unknown]
  - Intervertebral disc degeneration [Unknown]

NARRATIVE: CASE EVENT DATE: 201305
